FAERS Safety Report 6965371-0 (Version None)
Quarter: 2010Q3

REPORT INFORMATION
  Report Type: 
  Country: None (occurrence: None)
  Receive Date: 20100903
  Receipt Date: 20100825
  Transmission Date: 20110219
  Serious: Yes (Hospitalization)
  Sender: FDA-Public Use
  Company Number: A0774054A

PATIENT
  Age: 72 Year
  Sex: Female
  Weight: 58.6 kg

DRUGS (1)
  1. AVANDIA [Suspect]
     Dosage: 4MG PER DAY
     Route: 048
     Dates: start: 20060213, end: 20061119

REACTIONS (6)
  - ANXIETY [None]
  - DEPRESSION [None]
  - HAEMATOMA [None]
  - INJURY [None]
  - LOSS OF CONSCIOUSNESS [None]
  - SYNCOPE [None]
